FAERS Safety Report 22007807 (Version 2)
Quarter: 2023Q2

REPORT INFORMATION
  Report Type: Report from Study
  Country: MX (occurrence: MX)
  Receive Date: 20230218
  Receipt Date: 20230614
  Transmission Date: 20230722
  Serious: Yes (Other)
  Sender: FDA-Public Use
  Company Number: MX-002147023-NVSC2022MX249648

PATIENT
  Age: 43 Year
  Sex: Female

DRUGS (2)
  1. GILENYA [Suspect]
     Active Substance: FINGOLIMOD HYDROCHLORIDE
     Indication: Multiple sclerosis
     Dosage: 0.5 MG, QD
     Route: 048
     Dates: start: 20220816
  2. ACETAMINOPHEN [Suspect]
     Active Substance: ACETAMINOPHEN
     Indication: Product used for unknown indication
     Dosage: 1 G
     Route: 065

REACTIONS (17)
  - Leukopenia [Unknown]
  - Intellectual disability [Not Recovered/Not Resolved]
  - Memory impairment [Unknown]
  - Eye disorder [Unknown]
  - Mobility decreased [Recovering/Resolving]
  - Insomnia [Not Recovered/Not Resolved]
  - Coordination abnormal [Unknown]
  - Haemoglobin decreased [Not Recovered/Not Resolved]
  - Mood altered [Not Recovered/Not Resolved]
  - Fall [Not Recovered/Not Resolved]
  - Disorientation [Not Recovered/Not Resolved]
  - Tremor [Unknown]
  - Incontinence [Not Recovered/Not Resolved]
  - Pyrexia [Unknown]
  - Dyspepsia [Unknown]
  - Dyskinesia [Unknown]
  - Laryngitis [Unknown]

NARRATIVE: CASE EVENT DATE: 20221001
